FAERS Safety Report 5744026-4 (Version None)
Quarter: 2008Q2

REPORT INFORMATION
  Report Type: 
  Country: None (occurrence: None)
  Receive Date: 20080516
  Receipt Date: 20080501
  Transmission Date: 20081010
  Serious: Yes (Other)
  Sender: FDA-Public Use
  Company Number: 2008AL003726

PATIENT
  Age: 34 Year
  Sex: Female

DRUGS (2)
  1. NAPROXEN [Suspect]
     Indication: TENOSYNOVITIS
     Dosage: 500 MG; BID; PO
     Route: 048
     Dates: start: 20080409, end: 20080415
  2. LAMOTRIGINE [Concomitant]

REACTIONS (1)
  - EPILEPSY [None]
